FAERS Safety Report 11062342 (Version 1)
Quarter: 2015Q2

REPORT INFORMATION
  Report Type: Spontaneous
  Country: CA (occurrence: None)
  Receive Date: 20150422
  Receipt Date: 20150422
  Transmission Date: 20150821
  Serious: Yes (Other)
  Sender: FDA-Public Use
  Company Number: 2832006

PATIENT

DRUGS (2)
  1. METHOTREXATE [Suspect]
     Active Substance: METHOTREXATE
     Indication: ACUTE LYMPHOCYTIC LEUKAEMIA
     Route: 037
  2. CYTARABINE. [Concomitant]
     Active Substance: CYTARABINE

REACTIONS (5)
  - Accidental overdose [None]
  - Memory impairment [None]
  - Drug dispensing error [None]
  - Colitis [None]
  - Gastrointestinal haemorrhage [None]
